FAERS Safety Report 6244038-0 (Version None)
Quarter: 2009Q2

REPORT INFORMATION
  Report Type: 
  Country: None (occurrence: None)
  Receive Date: 20090625
  Receipt Date: 20070628
  Transmission Date: 20091009
  Serious: Yes (Other)
  Sender: FDA-Public Use
  Company Number: US-ASTRAZENECA-2006UW24034

PATIENT
  Age: 19499 Day
  Sex: Female
  Weight: 100.7 kg

DRUGS (21)
  1. SEROQUEL [Suspect]
     Indication: DEPRESSION
     Route: 048
     Dates: start: 20040817
  2. SEROQUEL [Suspect]
     Indication: SLEEP DISORDER
     Route: 048
     Dates: start: 20040817
  3. SEROQUEL [Suspect]
     Indication: NERVOUSNESS
     Route: 048
     Dates: start: 20040817
  4. SEROQUEL [Suspect]
     Route: 048
     Dates: start: 20040907
  5. SEROQUEL [Suspect]
     Route: 048
     Dates: start: 20040907
  6. SEROQUEL [Suspect]
     Route: 048
     Dates: start: 20040907
  7. HALDOL [Concomitant]
  8. ZYPREXA [Concomitant]
     Dates: start: 19980101, end: 20031201
  9. LIPITOR [Concomitant]
     Route: 048
     Dates: start: 20020808
  10. PROZAC [Concomitant]
     Indication: DEPRESSION
     Route: 048
     Dates: start: 19961217
  11. PROTONIX [Concomitant]
     Route: 048
     Dates: start: 20050330
  12. ACCUPRIL [Concomitant]
     Route: 048
     Dates: start: 20040824
  13. ACCUPRIL [Concomitant]
     Route: 048
     Dates: start: 20040921
  14. LYRICA [Concomitant]
  15. SINGULAIR [Concomitant]
     Dates: start: 20041121
  16. GABAPENTIN [Concomitant]
  17. ALPRAZOLAM [Concomitant]
     Route: 048
     Dates: start: 20010102
  18. ALPRAZOLAM [Concomitant]
     Route: 048
     Dates: start: 19990526
  19. ALPRAZOLAM [Concomitant]
     Route: 048
     Dates: start: 19971020
  20. ASPIRIN [Concomitant]
     Dates: start: 20050706
  21. PREDNISONE [Concomitant]

REACTIONS (2)
  - DIABETES MELLITUS [None]
  - DIABETIC NEUROPATHY [None]
